FAERS Safety Report 20542539 (Version 1)
Quarter: 2022Q1

REPORT INFORMATION
  Report Type: Spontaneous
  Country: IT (occurrence: IT)
  Receive Date: 20220302
  Receipt Date: 20220302
  Transmission Date: 20220423
  Serious: Yes (Other)
  Sender: FDA-Public Use
  Company Number: IT-NOVARTISPH-NVSC2022IT049142

PATIENT
  Age: 84 Year
  Sex: Male

DRUGS (4)
  1. ZOMETA [Suspect]
     Active Substance: ZOLEDRONIC ACID
     Indication: Neoplasm prostate
     Dosage: 4 MG
     Route: 042
     Dates: start: 20050101, end: 20051130
  2. IBANDRONATE SODIUM [Suspect]
     Active Substance: IBANDRONATE SODIUM
     Indication: Neoplasm prostate
     Dosage: 6 MG, CYCLIC
     Route: 042
     Dates: start: 20060208, end: 20080731
  3. IBANDRONATE SODIUM [Suspect]
     Active Substance: IBANDRONATE SODIUM
     Dosage: 6 MG, CYCLIC
     Route: 042
     Dates: start: 20080805, end: 20111031
  4. DECAPEPTYL [Concomitant]
     Indication: Neoplasm prostate
     Dosage: 3.75 MG
     Route: 030

REACTIONS (1)
  - Osteonecrosis of jaw [Unknown]

NARRATIVE: CASE EVENT DATE: 20111011
